FAERS Safety Report 15788615 (Version 3)
Quarter: 2019Q1

REPORT INFORMATION
  Report Type: Spontaneous
  Country: US (occurrence: US)
  Receive Date: 20190104
  Receipt Date: 20190219
  Transmission Date: 20190417
  Serious: Yes (Other)
  Sender: FDA-Public Use
  Company Number: PHEH2019US000594

PATIENT
  Sex: Male
  Weight: 117.5 kg

DRUGS (4)
  1. MEKINIST [Suspect]
     Active Substance: TRAMETINIB DIMETHYL SULFOXIDE
     Indication: MALIGNANT MELANOMA
     Dosage: 1.5 MG, QD
     Route: 048
     Dates: start: 20160329, end: 20181210
  2. SUMATRIPTAN. [Suspect]
     Active Substance: SUMATRIPTAN
     Indication: HEADACHE
     Dosage: 100 MG, UNK
     Route: 048
     Dates: start: 20181203
  3. ASA [Suspect]
     Active Substance: ASPIRIN
     Indication: ANTICOAGULANT THERAPY
     Dosage: 81 MG, QD
     Route: 048
     Dates: start: 20181015
  4. GABAPENTIN. [Suspect]
     Active Substance: GABAPENTIN
     Indication: HEADACHE
     Dosage: 100 MG, UNK
     Route: 048
     Dates: start: 20181210

REACTIONS (6)
  - Malignant melanoma [Not Recovered/Not Resolved]
  - Drug ineffective [Unknown]
  - Malignant neoplasm progression [Not Recovered/Not Resolved]
  - Pleural effusion [Unknown]
  - Metastases to central nervous system [Unknown]
  - Metastases to meninges [Unknown]
